FAERS Safety Report 5315772-1 (Version None)
Quarter: 2007Q2

REPORT INFORMATION
  Report Type: 
  Country: None (occurrence: None)
  Receive Date: 20070503
  Receipt Date: 20070424
  Transmission Date: 20071010
  Serious: Yes (Other)
  Sender: FDA-Public Use
  Company Number: JP-JNJFOC-20070405146

PATIENT
  Sex: Female

DRUGS (2)
  1. TYLENOL A [Suspect]
  2. TYLENOL A [Suspect]
     Indication: ABDOMINAL PAIN UPPER

REACTIONS (4)
  - ANAEMIA [None]
  - COLD SWEAT [None]
  - PERIPHERAL COLDNESS [None]
  - SYNCOPE [None]
